FAERS Safety Report 5017685-1 (Version None)
Quarter: 2006Q2

REPORT INFORMATION
  Report Type: 
  Country: None (occurrence: None)
  Receive Date: 20060525
  Receipt Date: 20060515
  Transmission Date: 20061013
  Serious: Yes (Death)
  Sender: FDA-Public Use
  Company Number: 2006S1004392

PATIENT
  Age: 57 Year
  Sex: Female

DRUGS (9)
  1. CLOZAPINE [Suspect]
     Dosage: 50 MG; QAM; PO
     Route: 048
     Dates: start: 20040629, end: 20060514
  2. CLOZAPINE [Suspect]
     Dosage: 100 MG; QAM; PO; 200 MG; QD; PO
     Route: 048
     Dates: start: 20040629, end: 20060514
  3. CLOZAPINE [Suspect]
     Dosage: 100 MG; QAM; PO; 200 MG; QD; PO
     Route: 048
     Dates: start: 20040629, end: 20060514
  4. POTASSIUM CHLORIDE [Concomitant]
  5. METOPROLOL TARTRATE [Concomitant]
  6. OMEPRAZOLE [Concomitant]
  7. LISINOPRIL [Concomitant]
  8. TRAZODONE HCL [Concomitant]
  9. RANITIDINE HYDROCHLORIDE [Concomitant]

REACTIONS (1)
  - DEATH [None]
